FAERS Safety Report 6544985-6 (Version None)
Quarter: 2010Q1

REPORT INFORMATION
  Report Type: 
  Country: None (occurrence: None)
  Receive Date: 20100121
  Receipt Date: 20091201
  Transmission Date: 20100710
  Serious: Yes (Hospitalization)
  Sender: FDA-Public Use
  Company Number: A0832057A

PATIENT
  Age: 43 Year
  Sex: Male
  Weight: 188.6 kg

DRUGS (14)
  1. AVANDIA [Suspect]
     Dosage: 8MG PER DAY
     Route: 048
     Dates: start: 20030901, end: 20071201
  2. LISINOPRIL [Concomitant]
  3. LOPRESSOR [Concomitant]
  4. TRICOR [Concomitant]
  5. ZETIA [Concomitant]
  6. CRESTOR [Concomitant]
  7. AVALIDE [Concomitant]
  8. AMARYL [Concomitant]
  9. COLCHICINE [Concomitant]
  10. TRIAMTERENE AND HYDROCHLOROTHIAZIDE [Concomitant]
  11. FAMOTIDINE [Concomitant]
  12. NAPROSYN [Concomitant]
  13. CELEBREX [Concomitant]
  14. WELLBUTRIN [Concomitant]

REACTIONS (5)
  - ARTERIAL OCCLUSIVE DISEASE [None]
  - CARDIAC DISORDER [None]
  - CORONARY ARTERY DISEASE [None]
  - MYOCARDIAL ISCHAEMIA [None]
  - VISION BLURRED [None]
